FAERS Safety Report 8074458-3 (Version None)
Quarter: 2012Q1

REPORT INFORMATION
  Report Type: 
  Country: None (occurrence: None)
  Receive Date: 20120126
  Receipt Date: 20120123
  Transmission Date: 20120608
  Serious: Yes (Death)
  Sender: FDA-Public Use
  Company Number: US-CELGENEUS-163-21880-11093508

PATIENT
  Sex: Female

DRUGS (8)
  1. REVLIMID [Suspect]
     Indication: MULTIPLE MYELOMA
     Dosage: 10 MILLIGRAM
     Route: 048
     Dates: start: 20110412, end: 20110501
  2. REVLIMID [Suspect]
     Dosage: 5 MILLIGRAM
     Route: 048
     Dates: start: 20110822, end: 20110901
  3. METOLAZONE [Concomitant]
     Dosage: 5 MILLIGRAM
     Route: 048
  4. LIPITOR [Concomitant]
     Dosage: 40 MILLIGRAM
     Route: 048
  5. LEVOXYL [Concomitant]
     Dosage: 75 MICROGRAM
     Route: 048
  6. BUMEX [Concomitant]
     Dosage: 1 MILLIGRAM
     Route: 048
  7. LEVOBUNOLOL HCL [Concomitant]
     Dosage: .25 PERCENT
     Route: 047
  8. LEXAPRO [Concomitant]
     Dosage: 10 MILLIGRAM
     Route: 048

REACTIONS (2)
  - SEDATION [None]
  - DEATH [None]
